FAERS Safety Report 6740807-9 (Version None)
Quarter: 2010Q2

REPORT INFORMATION
  Report Type: 
  Country: None (occurrence: None)
  Receive Date: 20100525
  Receipt Date: 20100525
  Transmission Date: 20101027
  Serious: No
  Sender: FDA-Public Use
  Company Number: None

PATIENT
  Age: 68 Year
  Sex: Male

DRUGS (1)
  1. MORPHINE [Suspect]
     Dates: start: 20100303, end: 20100325

REACTIONS (2)
  - NAUSEA [None]
  - VOMITING [None]
